FAERS Safety Report 6509045-9 (Version None)
Quarter: 2009Q4

REPORT INFORMATION
  Report Type: 
  Country: None (occurrence: None)
  Receive Date: 20091221
  Receipt Date: 20090910
  Transmission Date: 20100525
  Serious: No
  Sender: FDA-Public Use
  Company Number: US-ASTRAZENECA-2009SE12473

PATIENT
  Age: 73 Year
  Sex: Female
  Weight: 81.6 kg

DRUGS (2)
  1. CRESTOR [Suspect]
     Indication: BLOOD CHOLESTEROL INCREASED
     Route: 048
     Dates: start: 20090401
  2. LIPITOR [Concomitant]
     Route: 065

REACTIONS (2)
  - DEPRESSION [None]
  - FATIGUE [None]
